FAERS Safety Report 8225640-3 (Version None)
Quarter: 2012Q1

REPORT INFORMATION
  Report Type: 
  Country: None (occurrence: None)
  Receive Date: 20120321
  Receipt Date: 20120314
  Transmission Date: 20120608
  Serious: Yes (Hospitalization)
  Sender: FDA-Public Use
  Company Number: BE-B.I. PHARMACEUTICALS,INC./RIDGEFIELD-2012-BL-00193BL

PATIENT
  Age: 85 Year
  Sex: Male

DRUGS (10)
  1. D-CURE [Concomitant]
  2. FLUTICASONE PROPIONATE/SALMETEROL [Concomitant]
  3. SPIRIVA [Concomitant]
  4. CARDIOASPIRINE [Concomitant]
  5. FUROSEMIDE [Concomitant]
  6. PRADAXA [Suspect]
     Indication: ANTICOAGULANT THERAPY
     Dosage: 110 MG
     Route: 048
     Dates: start: 20110401, end: 20110501
  7. CORDARONE [Concomitant]
  8. CRESTOR [Concomitant]
  9. PANTOPRAZOLE [Concomitant]
  10. RAMIPRIL [Concomitant]

REACTIONS (2)
  - ACUTE PULMONARY OEDEMA [None]
  - RENAL FUNCTION TEST ABNORMAL [None]
